FAERS Safety Report 7294903-0 (Version None)
Quarter: 2011Q1

REPORT INFORMATION
  Report Type: 
  Country: None (occurrence: None)
  Receive Date: 20110216
  Receipt Date: 20110211
  Transmission Date: 20110831
  Serious: Yes (Death, Hospitalization)
  Sender: FDA-Public Use
  Company Number: US-JNJFOC-20110204160

PATIENT
  Sex: Female

DRUGS (2)
  1. REOPRO [Suspect]
     Dosage: INFUSION OVER 17 HOURS
     Route: 042
  2. REOPRO [Suspect]
     Indication: SURGERY
     Dosage: BOLUS
     Route: 042

REACTIONS (1)
  - RUPTURED CEREBRAL ANEURYSM [None]
